FAERS Safety Report 9031200 (Version 1)
Quarter: 2013Q1

REPORT INFORMATION
  Report Type: Spontaneous
  Country: US (occurrence: US)
  Receive Date: 20130123
  Receipt Date: 20130123
  Transmission Date: 20140127
  Serious: Yes (Other)
  Sender: FDA-Public Use
  Company Number: CHPA2013US000708

PATIENT
  Age: 67 Year
  Sex: Male

DRUGS (1)
  1. 4 WAY FAST ACTING NASAL SPRAY [Suspect]
     Indication: SEASONAL ALLERGY
     Dosage: 1 SQUIRT EACH NOSTRIL 2XDAY, AS NEEDED
     Route: 045

REACTIONS (2)
  - Sinusitis [Recovered/Resolved]
  - Underdose [Unknown]
